FAERS Safety Report 10724205 (Version 1)
Quarter: 2015Q1

REPORT INFORMATION
  Report Type: Spontaneous
  Country: PR (occurrence: US)
  Receive Date: 20150120
  Receipt Date: 20150120
  Transmission Date: 20150721
  Serious: Yes (Death, Hospitalization)
  Sender: FDA-Public Use
  Company Number: US-ASTRAZENECA-2015SE03852

PATIENT
  Age: 83 Year
  Sex: Male

DRUGS (1)
  1. BRILINTA [Suspect]
     Active Substance: TICAGRELOR
     Indication: ACUTE CORONARY SYNDROME
     Route: 048
     Dates: start: 201412, end: 20141230

REACTIONS (3)
  - Thrombosis in device [Fatal]
  - Cardiogenic shock [Fatal]
  - Intentional product misuse [Unknown]

NARRATIVE: CASE EVENT DATE: 201412
